FAERS Safety Report 5529107-2 (Version None)
Quarter: 2007Q4

REPORT INFORMATION
  Report Type: 
  Country: None (occurrence: None)
  Receive Date: 20071129
  Receipt Date: 20070129
  Transmission Date: 20080405
  Serious: No
  Sender: FDA-Public Use
  Company Number: A0632030A

PATIENT
  Age: 49 Year
  Sex: Female

DRUGS (1)
  1. BUPROPION HCL [Suspect]
     Indication: DRUG USE FOR UNKNOWN INDICATION
     Dosage: 100MG UNKNOWN
     Route: 048
     Dates: start: 20061203, end: 20061215

REACTIONS (7)
  - DYSGEUSIA [None]
  - FEELING ABNORMAL [None]
  - FLATULENCE [None]
  - GASTROINTESTINAL DISORDER [None]
  - HEADACHE [None]
  - PHARMACEUTICAL PRODUCT COMPLAINT [None]
  - STOMACH DISCOMFORT [None]
